FAERS Safety Report 9411630 (Version 1)
Quarter: 2013Q3

REPORT INFORMATION
  Report Type: Spontaneous
  Country: US (occurrence: US)
  Receive Date: 20130722
  Receipt Date: 20130722
  Transmission Date: 20140515
  Serious: No
  Sender: FDA-Public Use
  Company Number: US-B.I. PHARMACEUTICALS,INC./RIDGEFIELD-2013-BI-21007BP

PATIENT
  Age: 73 Year
  Sex: Female
  Weight: 82 kg

DRUGS (15)
  1. SPIRIVA [Suspect]
     Indication: EMPHYSEMA
     Dosage: 18 MCG
     Route: 055
     Dates: start: 201306, end: 201306
  2. CLOPIDOGREL [Concomitant]
     Indication: CAROTID ARTERY OCCLUSION
     Dosage: 75 MG
     Route: 048
  3. LISINOPRIL [Concomitant]
     Indication: HYPERTENSION
     Dosage: 20 MG
     Route: 048
  4. PROVENTIL  PRO AIR [Concomitant]
     Indication: EMPHYSEMA
     Dosage: 8 PUF
     Route: 055
  5. LORTAB [Concomitant]
     Indication: BACK PAIN
     Dosage: 7.5 MG
     Route: 048
  6. DILTIAZEM [Concomitant]
     Indication: HYPERTENSION
     Dosage: 480 MG
     Route: 048
  7. ZOCOR [Concomitant]
     Indication: BLOOD CHOLESTEROL INCREASED
     Dosage: 20 MG
     Route: 048
  8. TOPROL [Concomitant]
     Indication: HYPERTENSION
     Dosage: 150 MG
     Route: 048
  9. POTASSIUM [Concomitant]
     Dosage: 16 MEQ
     Route: 048
  10. ASPIRIN [Concomitant]
     Indication: CARDIAC DISORDER
     Dosage: 81 MG
     Route: 048
  11. PRILOSEC [Concomitant]
     Indication: GASTROOESOPHAGEAL REFLUX DISEASE
     Dosage: 20 MG
     Route: 048
  12. ROBAXIN [Concomitant]
     Indication: MUSCLE SPASMS
     Dosage: 500 MG
     Route: 048
  13. ROBAXIN [Concomitant]
     Indication: SCOLIOSIS
  14. SYMBICORT [Concomitant]
     Indication: EMPHYSEMA
     Dosage: 2 PUF
     Route: 055
     Dates: start: 20130615
  15. PULMICORT [Concomitant]
     Indication: EMPHYSEMA
     Dosage: 4 PUF
     Route: 055

REACTIONS (5)
  - Glossodynia [Recovered/Resolved]
  - Chapped lips [Recovered/Resolved]
  - Lip pain [Recovered/Resolved]
  - Oropharyngeal pain [Recovered/Resolved]
  - Dysphonia [Recovered/Resolved]
